FAERS Safety Report 8865979 (Version 1)
Quarter: 2012Q4

REPORT INFORMATION
  Report Type: Report from Study
  Country: US (occurrence: US)
  Receive Date: 20121025
  Receipt Date: 20121025
  Transmission Date: 20130627
  Serious: No
  Sender: FDA-Public Use
  Company Number: US-ABBOTT-11P-163-0879545-00

PATIENT
  Sex: Female
  Weight: 94.43 kg

DRUGS (16)
  1. LUPRON DEPOT 3.75 MG [Suspect]
     Indication: ENDOMETRIOSIS
     Dates: start: 20110930
  2. NORETHINDRONE [Concomitant]
     Indication: HORMONE REPLACEMENT THERAPY
     Dates: start: 201109
  3. LITHIUM [Concomitant]
     Indication: PRODUCT USED FOR UNKNOWN INDICATION
  4. BUSPAR [Concomitant]
     Indication: PRODUCT USED FOR UNKNOWN INDICATION
  5. KLONOPIN [Concomitant]
     Indication: PRODUCT USED FOR UNKNOWN INDICATION
  6. OXYCODONE [Concomitant]
     Indication: PRODUCT USED FOR UNKNOWN INDICATION
  7. NAPROSYN [Concomitant]
     Indication: PRODUCT USED FOR UNKNOWN INDICATION
  8. FOLIC ACID [Concomitant]
     Indication: PRODUCT USED FOR UNKNOWN INDICATION
  9. LEVOTHYROXINE [Concomitant]
     Indication: PRODUCT USED FOR UNKNOWN INDICATION
  10. OXYBUTYNIN [Concomitant]
     Indication: ATONIC URINARY BLADDER
     Dates: start: 2011
  11. OXYBUTYNIN [Concomitant]
     Dates: end: 2011
  12. SARNA [Concomitant]
     Indication: PRODUCT USED FOR UNKNOWN INDICATION
  13. PROMETHAZINE [Concomitant]
     Indication: PRODUCT USED FOR UNKNOWN INDICATION
  14. LOMOTIL [Concomitant]
     Indication: PRODUCT USED FOR UNKNOWN INDICATION
  15. NEURONTIN [Concomitant]
     Indication: PRODUCT USED FOR UNKNOWN INDICATION
  16. COPAXONE [Concomitant]
     Indication: MULTIPLE SCLEROSIS

REACTIONS (3)
  - Atonic urinary bladder [Unknown]
  - Enuresis [Unknown]
  - Urinary incontinence [Unknown]
